FAERS Safety Report 14815727 (Version 1)
Quarter: 2018Q2

REPORT INFORMATION
  Report Type: Spontaneous
  Country: PE (occurrence: PE)
  Receive Date: 20180426
  Receipt Date: 20180426
  Transmission Date: 20180711
  Serious: Yes (Other)
  Sender: FDA-Public Use
  Company Number: PE-GLAXOSMITHKLINE-PE2018GSK072605

PATIENT
  Age: 80 Year
  Sex: Female

DRUGS (1)
  1. RELVAR ELLIPTA [Suspect]
     Active Substance: FLUTICASONE FUROATE\VILANTEROL TRIFENATATE
     Indication: BRONCHIECTASIS
     Dosage: 2 PUFF(S), BID
     Route: 055

REACTIONS (3)
  - Chest pain [Recovering/Resolving]
  - Acute myocardial infarction [Recovered/Resolved]
  - Dyspnoea [Recovering/Resolving]
